FAERS Safety Report 10681622 (Version 2)
Quarter: 2015Q1

REPORT INFORMATION
  Report Type: Spontaneous
  Country: CA (occurrence: None)
  Receive Date: 20141224
  Receipt Date: 20150224
  Transmission Date: 20150720
  Serious: Yes (Other)
  Sender: FDA-Public Use
  Company Number: 2014SA172622

PATIENT
  Sex: Male

DRUGS (1)
  1. GOLD BOND ULTIMATE DIABETICS [Suspect]
     Active Substance: DIMETHICONE\PETROLATUM
     Indication: DRY SKIN
     Route: 061
     Dates: start: 20141104

REACTIONS (3)
  - Drug ineffective [None]
  - Skin haemorrhage [None]
  - Skin fissures [None]

NARRATIVE: CASE EVENT DATE: 20141207
